FAERS Safety Report 9313581 (Version 1)
Quarter: 2013Q2

REPORT INFORMATION
  Report Type: Spontaneous
  Country: US (occurrence: US)
  Receive Date: 20130528
  Receipt Date: 20130528
  Transmission Date: 20140414
  Serious: No
  Sender: FDA-Public Use
  Company Number: US-ASTRAZENECA-2013SE34883

PATIENT
  Age: 59 Year
  Sex: Female
  Weight: 68.9 kg

DRUGS (15)
  1. ARIMIDEX [Suspect]
     Indication: BREAST CANCER FEMALE
     Route: 048
     Dates: start: 20120427
  2. PRISTIQ [Concomitant]
     Indication: DEPRESSION
     Route: 048
     Dates: start: 2007
  3. PRISTIQ [Concomitant]
     Indication: DEPRESSION
     Route: 048
  4. HCTZ [Concomitant]
     Indication: HYPERTENSION
     Route: 048
     Dates: start: 201010
  5. DIOVAN [Concomitant]
     Indication: HYPERTENSION
     Route: 048
     Dates: start: 201010
  6. LUNESTA [Concomitant]
     Indication: INSOMNIA
     Route: 048
     Dates: start: 2012
  7. XANAX [Concomitant]
     Indication: ANXIETY
     Route: 048
     Dates: start: 201110
  8. NEURONTNIN [Concomitant]
     Indication: NEURALGIA
     Dosage: DAILY
     Route: 048
     Dates: start: 2012
  9. NEURONTNIN [Concomitant]
     Indication: NEURALGIA
     Route: 048
     Dates: start: 201305
  10. LIPITOR [Concomitant]
     Indication: BLOOD CHOLESTEROL INCREASED
     Route: 048
     Dates: start: 201204
  11. LOVAZA [Concomitant]
     Route: 048
  12. MECLIZINE [Concomitant]
     Indication: VERTIGO
     Route: 048
  13. NORCO [Concomitant]
     Indication: PAIN
     Dosage: 5/325
     Route: 048
     Dates: start: 201205
  14. NORCO [Concomitant]
     Indication: PAIN
     Dosage: 7.5/325
     Route: 048
     Dates: start: 2013, end: 201305
  15. OXYCODONE [Concomitant]
     Indication: PAIN
     Route: 048
     Dates: start: 201305

REACTIONS (23)
  - Vertigo [Recovered/Resolved]
  - Dizziness [Not Recovered/Not Resolved]
  - Colour blindness [Not Recovered/Not Resolved]
  - Visual impairment [Not Recovered/Not Resolved]
  - Musculoskeletal stiffness [Not Recovered/Not Resolved]
  - Musculoskeletal stiffness [Not Recovered/Not Resolved]
  - Musculoskeletal stiffness [Not Recovered/Not Resolved]
  - Insomnia [Not Recovered/Not Resolved]
  - Memory impairment [Not Recovered/Not Resolved]
  - Nervous system disorder [Not Recovered/Not Resolved]
  - Hypothyroidism [Not Recovered/Not Resolved]
  - Neuralgia [Not Recovered/Not Resolved]
  - Blood cholesterol abnormal [Unknown]
  - Pain [Unknown]
  - Activities of daily living impaired [Not Recovered/Not Resolved]
  - Joint swelling [Not Recovered/Not Resolved]
  - Joint stiffness [Not Recovered/Not Resolved]
  - Trigger finger [Not Recovered/Not Resolved]
  - Arthritis [Not Recovered/Not Resolved]
  - Joint stiffness [Not Recovered/Not Resolved]
  - Arthralgia [Not Recovered/Not Resolved]
  - Myalgia [Not Recovered/Not Resolved]
  - Bone pain [Not Recovered/Not Resolved]
